FAERS Safety Report 8041051-8 (Version None)
Quarter: 2012Q1

REPORT INFORMATION
  Report Type: 
  Country: None (occurrence: None)
  Receive Date: 20120109
  Receipt Date: 20111227
  Transmission Date: 20120608
  Serious: Yes (Other)
  Sender: FDA-Public Use
  Company Number: 2011P1015570

PATIENT
  Age: 62 Year
  Sex: Female

DRUGS (3)
  1. RISPERIDONE [Suspect]
     Indication: SCHIZOPHRENIA
     Dosage: 2 MG;QD;4 MG;QD; 1 MG;QD;
     Dates: start: 20040101, end: 20070101
  2. RISPERIDONE [Suspect]
     Indication: SCHIZOPHRENIA
     Dosage: 2 MG;QD;4 MG;QD; 1 MG;QD;
     Dates: start: 20080101
  3. RISPERIDONE [Suspect]
     Indication: SCHIZOPHRENIA
     Dosage: 2 MG;QD;4 MG;QD; 1 MG;QD;
     Dates: start: 20070101, end: 20080101

REACTIONS (8)
  - PSYCHOMOTOR HYPERACTIVITY [None]
  - MANIA [None]
  - DISTRACTIBILITY [None]
  - PRESSURE OF SPEECH [None]
  - TACHYPHRENIA [None]
  - INSOMNIA [None]
  - DRUG WITHDRAWAL SYNDROME [None]
  - EUPHORIC MOOD [None]
